FAERS Safety Report 18321150 (Version 1)
Quarter: 2020Q3

REPORT INFORMATION
  Report Type: Spontaneous
  Country: JP (occurrence: JP)
  Receive Date: 20200928
  Receipt Date: 20200928
  Transmission Date: 20201103
  Serious: Yes (Other)
  Sender: FDA-Public Use
  Company Number: JP-PFIZER INC-2020371154

PATIENT
  Age: 7 Decade
  Sex: Female

DRUGS (1)
  1. LORBRENA [Suspect]
     Active Substance: LORLATINIB
     Dosage: UNK

REACTIONS (8)
  - Memory impairment [Unknown]
  - Dyslipidaemia [Unknown]
  - Hepatic encephalopathy [Unknown]
  - Ascites [Unknown]
  - Pleural effusion [Unknown]
  - Cognitive disorder [Unknown]
  - Hypercholesterolaemia [Unknown]
  - Pyrexia [Unknown]
